FAERS Safety Report 7553951-3 (Version None)
Quarter: 2011Q2

REPORT INFORMATION
  Report Type: 
  Country: None (occurrence: None)
  Receive Date: 20110609
  Receipt Date: 20110603
  Transmission Date: 20111010
  Serious: No
  Sender: FDA-Public Use
  Company Number: 2011-00514

PATIENT
  Sex: Female

DRUGS (2)
  1. ZICAM COLD REMEDY NASAL GEL [Suspect]
     Dates: start: 20030901
  2. ZICAM COLD REMEDY NASAL GEL [Suspect]
     Dates: start: 20030901

REACTIONS (2)
  - AGEUSIA [None]
  - ANOSMIA [None]
